FAERS Safety Report 13744241 (Version 2)
Quarter: 2017Q3

REPORT INFORMATION
  Report Type: Spontaneous
  Country: GB (occurrence: GB)
  Receive Date: 20170712
  Receipt Date: 20170914
  Transmission Date: 20171127
  Serious: Yes (Life-Threatening, Hospitalization)
  Sender: FDA-Public Use
  Company Number: GB-ROCHE-1961779

PATIENT
  Age: 15 Year
  Sex: Female

DRUGS (6)
  1. NUTROPIN AQ [Suspect]
     Active Substance: SOMATROPIN
     Indication: TURNER^S SYNDROME
     Route: 058
     Dates: end: 20170613
  2. IBUPROFEN. [Concomitant]
     Active Substance: IBUPROFEN
  3. NUTROPIN AQ [Suspect]
     Active Substance: SOMATROPIN
     Indication: BODY HEIGHT BELOW NORMAL
     Route: 058
     Dates: start: 20160217
  4. CODEINE [Concomitant]
     Active Substance: CODEINE
  5. EVOREL [Concomitant]
     Indication: PRIMARY HYPOGONADISM
     Route: 062
     Dates: start: 20170208, end: 20170208
  6. PARACETAMOL [Concomitant]
     Active Substance: ACETAMINOPHEN

REACTIONS (11)
  - Metastases to pleura [Unknown]
  - Spinal cord compression [Unknown]
  - Dyskinesia [Unknown]
  - Urinary retention [Unknown]
  - Gait inability [Unknown]
  - Lymphadenopathy [Unknown]
  - Alveolar rhabdomyosarcoma [Unknown]
  - Bone marrow infiltration [Unknown]
  - Limb mass [Unknown]
  - Pain in extremity [Unknown]
  - Gait disturbance [Unknown]

NARRATIVE: CASE EVENT DATE: 201702
